FAERS Safety Report 10443727 (Version 3)
Quarter: 2014Q3

REPORT INFORMATION
  Report Type: Report from Study
  Country: CA (occurrence: CA)
  Receive Date: 20140910
  Receipt Date: 20140919
  Transmission Date: 20150326
  Serious: Yes (Death, Hospitalization, Other)
  Sender: FDA-Public Use
  Company Number: PHHY2012CA089487

PATIENT
  Age: 77 Year
  Sex: Female

DRUGS (1)
  1. SANDOSTATIN LAR DEPOT [Suspect]
     Active Substance: OCTREOTIDE ACETATE
     Indication: METASTATIC CARCINOID TUMOUR
     Dosage: 20 MG, EVERY 4 WEEKS
     Route: 030
     Dates: start: 20120808

REACTIONS (12)
  - Metastases to bone [Unknown]
  - Fatigue [Unknown]
  - Terminal state [Unknown]
  - Metastases to spine [Unknown]
  - Back pain [Unknown]
  - Malaise [Unknown]
  - Pain [Unknown]
  - Death [Fatal]
  - Blood pressure systolic increased [Unknown]
  - Injection site haemorrhage [Unknown]
  - Abdominal pain [Unknown]
  - Wound [Not Recovered/Not Resolved]

NARRATIVE: CASE EVENT DATE: 2014
